FAERS Safety Report 16734927 (Version 1)
Quarter: 2019Q3

REPORT INFORMATION
  Report Type: Spontaneous
  Country: None (occurrence: CO)
  Receive Date: 20190823
  Receipt Date: 20190823
  Transmission Date: 20191005
  Serious: Yes (Other)
  Sender: FDA-Public Use
  Company Number: CO-POPULATION COUNCIL, INC.-2073568

PATIENT
  Age: 26 Year
  Sex: Female

DRUGS (1)
  1. JADELLE [Suspect]
     Active Substance: LEVONORGESTREL
     Indication: CONTRACEPTION
     Route: 059
     Dates: start: 20181227

REACTIONS (6)
  - Headache [None]
  - Menstruation delayed [Not Recovered/Not Resolved]
  - Feeling abnormal [None]
  - Loss of libido [None]
  - Menorrhagia [Recovered/Resolved]
  - Menorrhagia [None]

NARRATIVE: CASE EVENT DATE: 201812
